FAERS Safety Report 6956995-5 (Version None)
Quarter: 2010Q3

REPORT INFORMATION
  Report Type: 
  Country: None (occurrence: None)
  Receive Date: 20100827
  Receipt Date: 20100827
  Transmission Date: 20110219
  Serious: Yes (Hospitalization, Other)
  Sender: FDA-Public Use
  Company Number: None

PATIENT
  Sex: Female
  Weight: 39.4584 kg

DRUGS (22)
  1. MYFORTIC [Suspect]
     Indication: IMMUNOSUPPRESSION
     Dosage: 720 MG BID PO
     Dates: start: 20100803, end: 20100821
  2. MYFORTIC [Suspect]
     Indication: NAUSEA
     Dosage: 720 MG BID PO
     Dates: start: 20100803, end: 20100821
  3. PROGRAF [Concomitant]
  4. PREDNISONE [Concomitant]
  5. VALCYTE [Concomitant]
  6. SPORANOX [Concomitant]
  7. BACTRIM DS [Concomitant]
  8. NYSTATIN ORAL SUSPENSION [Concomitant]
  9. ZYRTEC [Concomitant]
  10. CALCIUM [Concomitant]
  11. LORTAB [Concomitant]
  12. MIRALAX [Concomitant]
  13. CREON [Concomitant]
  14. LEXAPRO [Concomitant]
  15. AQUAADEKS [Concomitant]
  16. PRILOSEC [Concomitant]
  17. PHENERGAN [Concomitant]
  18. CYCLOSPORINE [Concomitant]
  19. LEVETIRACETAM [Concomitant]
  20. VALACYCLOVIR [Concomitant]
  21. VALGANCICLOVIR [Concomitant]
  22. VORICONAZOLE [Concomitant]

REACTIONS (6)
  - GRAND MAL CONVULSION [None]
  - HEADACHE [None]
  - HYPERHIDROSIS [None]
  - HYPERTENSION [None]
  - NAUSEA [None]
  - VOMITING [None]
